FAERS Safety Report 23769214 (Version 2)
Quarter: 2025Q1

REPORT INFORMATION
  Report Type: Spontaneous
  Country: US (occurrence: US)
  Receive Date: 20240422
  Receipt Date: 20250102
  Transmission Date: 20250408
  Serious: Yes (Other)
  Sender: PFIZER
  Company Number: US-PFIZER INC-202400091059

PATIENT
  Age: 67 Year
  Sex: Female

DRUGS (4)
  1. IBRANCE [Suspect]
     Active Substance: PALBOCICLIB
     Indication: Neoplasm malignant
     Dates: start: 20231122
  2. IBRANCE [Suspect]
     Active Substance: PALBOCICLIB
     Dates: start: 20231227, end: 20240117
  3. IBRANCE [Suspect]
     Active Substance: PALBOCICLIB
     Dates: start: 20240312, end: 20240402
  4. IBRANCE [Suspect]
     Active Substance: PALBOCICLIB
     Dates: start: 202404

REACTIONS (3)
  - Depression [Unknown]
  - White blood cell count decreased [Recovering/Resolving]
  - Poor peripheral circulation [Recovering/Resolving]

NARRATIVE: CASE EVENT DATE: 20230101
